FAERS Safety Report 4811746-5 (Version None)
Quarter: 2005Q4

REPORT INFORMATION
  Report Type: 
  Country: None (occurrence: None)
  Receive Date: 20051026
  Receipt Date: 20051018
  Transmission Date: 20060501
  Serious: Yes (Disabling)
  Sender: FDA-Public Use
  Company Number: 2005-08-0160

PATIENT
  Age: 39 Year
  Sex: Male
  Weight: 140 kg

DRUGS (3)
  1. PEG-INTRON [Suspect]
     Indication: HEPATITIS C
     Dosage: 150 MCG QWK SUBCUTANEOUS
     Route: 058
     Dates: start: 20041101, end: 20050707
  2. REBETOL [Suspect]
     Indication: HEPATITIS C
     Dosage: 1200 MG QD ORAL
     Route: 048
     Dates: start: 20041101, end: 20050707
  3. ACETAMINOPHEN [Concomitant]

REACTIONS (10)
  - ASTHENOPIA [None]
  - BLINDNESS [None]
  - CHORIORETINITIS [None]
  - CHOROIDAL NEOVASCULARISATION [None]
  - HIV INFECTION [None]
  - HYPERMETROPIA [None]
  - NERVOUS SYSTEM DISORDER [None]
  - RETINAL EXUDATES [None]
  - SYPHILIS [None]
  - TOXOPLASMOSIS [None]
